FAERS Safety Report 21513676 (Version 5)
Quarter: 2022Q4

REPORT INFORMATION
  Report Type: Report from Study
  Country: US (occurrence: US)
  Receive Date: 20221027
  Receipt Date: 20221124
  Transmission Date: 20230113
  Serious: Yes (Hospitalization, Other)
  Sender: FDA-Public Use
  Company Number: US-BRISTOL-MYERS SQUIBB COMPANY-2022-127107

PATIENT
  Age: 60 Year
  Sex: Female
  Weight: 48.5 kg

DRUGS (4)
  1. CARBOPLATIN [Suspect]
     Active Substance: CARBOPLATIN
     Indication: Head and neck cancer
     Route: 065
     Dates: start: 20220513, end: 20220624
  2. CISPLATIN [Suspect]
     Active Substance: CISPLATIN
     Indication: Head and neck cancer
     Route: 065
     Dates: start: 20220725, end: 20220909
  3. NIVOLUMAB [Suspect]
     Active Substance: NIVOLUMAB
     Indication: Head and neck cancer
     Route: 065
     Dates: start: 20220513, end: 20220624
  4. PACLITAXEL [Suspect]
     Active Substance: PACLITAXEL
     Indication: Head and neck cancer
     Route: 065
     Dates: start: 20220513, end: 20220708

REACTIONS (6)
  - Failure to thrive [Unknown]
  - Nausea [Unknown]
  - Vomiting [Unknown]
  - Diarrhoea [Unknown]
  - Oesophagitis [Unknown]
  - Feeding intolerance [Unknown]

NARRATIVE: CASE EVENT DATE: 20221001
